FAERS Safety Report 10909441 (Version 2)
Quarter: 2015Q2

REPORT INFORMATION
  Report Type: Spontaneous
  Country: US (occurrence: US)
  Receive Date: 20150312
  Receipt Date: 20150615
  Transmission Date: 20150821
  Serious: Yes (Hospitalization, Other)
  Sender: FDA-Public Use
  Company Number: US-009507513-1110USA02014

PATIENT
  Sex: Female
  Weight: 102.4 kg

DRUGS (4)
  1. ALENDRONATE SODIUM. [Suspect]
     Active Substance: ALENDRONATE SODIUM
     Dosage: 70 MG, UNK
     Route: 048
     Dates: start: 20091217, end: 20100227
  2. FOSAMAX PLUS D [Suspect]
     Active Substance: ALENDRONATE SODIUM\CHOLECALCIFEROL
     Indication: BONE DENSITY DECREASED
     Dosage: 70 MG-2800 IU, QW
     Route: 048
     Dates: start: 20090202, end: 20090927
  3. FOSAMAX [Suspect]
     Active Substance: ALENDRONATE SODIUM
     Indication: OSTEOPENIA
     Dosage: 70 MG, QW
     Route: 048
     Dates: start: 20060131
  4. CALCIUM (UNSPECIFIED) [Concomitant]
     Active Substance: CALCIUM
     Indication: OSTEOPENIA
     Route: 048

REACTIONS (31)
  - Femur fracture [Unknown]
  - Carotid endarterectomy [Unknown]
  - Osteoarthritis [Unknown]
  - Peripheral vascular disorder [Unknown]
  - Adenotonsillectomy [Unknown]
  - Open reduction of fracture [Unknown]
  - Haemorrhagic anaemia [Unknown]
  - Knee arthroplasty [Unknown]
  - Hypothyroidism [Unknown]
  - Urinary tract infection [Unknown]
  - Hyperkalaemia [Unknown]
  - Fracture delayed union [Unknown]
  - Joint range of motion decreased [Unknown]
  - Ankle fracture [Unknown]
  - Open reduction of fracture [Unknown]
  - Back pain [Not Recovered/Not Resolved]
  - Hyperlipidaemia [Unknown]
  - Asthenia [Unknown]
  - Visual field defect [Unknown]
  - Alcohol use [Unknown]
  - Spinal laminectomy [Unknown]
  - Polyarthritis [Unknown]
  - Chronic obstructive pulmonary disease [Not Recovered/Not Resolved]
  - Dehydration [Unknown]
  - Psoriatic arthropathy [Unknown]
  - Abdominal hernia repair [Unknown]
  - Psoriasis [Unknown]
  - Limb operation [Unknown]
  - Type 2 diabetes mellitus [Unknown]
  - Hypertension [Unknown]
  - Lumbar spinal stenosis [Unknown]

NARRATIVE: CASE EVENT DATE: 20060315
